FAERS Safety Report 5410056-5 (Version None)
Quarter: 2007Q3

REPORT INFORMATION
  Report Type: 
  Country: None (occurrence: None)
  Receive Date: 20070713
  Receipt Date: 20070413
  Transmission Date: 20080115
  Serious: Yes (Hospitalization)
  Sender: FDA-Public Use
  Company Number: 2007SP001427

PATIENT
  Age: 62 Year
  Sex: Male

DRUGS (6)
  1. LUNESTA [Suspect]
     Indication: INSOMNIA
     Dosage: ORAL
     Route: 048
     Dates: start: 20070401, end: 20070401
  2. TOPROL-XL [Concomitant]
  3. PRAVACHOL [Concomitant]
  4. PROZAC [Concomitant]
  5. ASPIRIN [Concomitant]
  6. PLATELETS [Concomitant]

REACTIONS (2)
  - DEHYDRATION [None]
  - DYSGEUSIA [None]
